FAERS Safety Report 19498493 (Version 3)
Quarter: 2022Q1

REPORT INFORMATION
  Report Type: Spontaneous
  Country: JP (occurrence: JP)
  Receive Date: 20210706
  Receipt Date: 20220313
  Transmission Date: 20220423
  Serious: Yes (Death)
  Sender: FDA-Public Use
  Company Number: US-CELGENE-JPN-20210700649

PATIENT
  Sex: Female
  Weight: 41.2 kg

DRUGS (6)
  1. VIDAZA [Suspect]
     Active Substance: AZACITIDINE
     Indication: Myelodysplastic syndrome
     Dosage: 100 MILLIGRAM
     Route: 048
     Dates: start: 20200916
  2. VIDAZA [Suspect]
     Active Substance: AZACITIDINE
     Dosage: 100 MILLIGRAM
     Route: 048
     Dates: start: 20201013, end: 2020
  3. VIDAZA [Suspect]
     Active Substance: AZACITIDINE
     Dosage: 100 MILLIGRAM
     Route: 048
     Dates: start: 20201110, end: 20201113
  4. MAGNESIUM OXIDE [Concomitant]
     Active Substance: MAGNESIUM OXIDE
     Indication: Constipation
     Route: 065
     Dates: start: 20200916, end: 20201116
  5. VONOPRAZAN FUMARATE [Concomitant]
     Active Substance: VONOPRAZAN FUMARATE
     Indication: Gastric ulcer
     Route: 065
     Dates: start: 20201106, end: 20201116
  6. PREDONINE [Concomitant]
     Active Substance: PREDNISOLONE
     Indication: Haemolytic anaemia
     Route: 065
     Dates: start: 20201106, end: 20201116

REACTIONS (3)
  - Tumour lysis syndrome [Fatal]
  - General physical health deterioration [Unknown]
  - Decreased activity [Unknown]

NARRATIVE: CASE EVENT DATE: 20200101
